FAERS Safety Report 18329374 (Version 1)
Quarter: 2020Q3

REPORT INFORMATION
  Report Type: Spontaneous
  Country: US (occurrence: US)
  Receive Date: 20200929
  Receipt Date: 20200929
  Transmission Date: 20201103
  Serious: Yes (Disabling)
  Sender: FDA-Public Use
  Company Number: None

PATIENT
  Age: 53 Year
  Sex: Female
  Weight: 63.5 kg

DRUGS (7)
  1. EMGALITY [Suspect]
     Active Substance: GALCANEZUMAB-GNLM
     Indication: MIGRAINE
     Dosage: ?          QUANTITY:1 DF DOSAGE FORM;?
     Route: 058
     Dates: start: 20200520, end: 20200820
  2. SYNTHROID [Concomitant]
     Active Substance: LEVOTHYROXINE SODIUM
  3. IMITREX [Concomitant]
     Active Substance: SUMATRIPTAN SUCCINATE
  4. IBUPROFEN. [Concomitant]
     Active Substance: IBUPROFEN
  5. PROTONIX [Concomitant]
     Active Substance: PANTOPRAZOLE SODIUM
  6. VITAMIN D [Concomitant]
     Active Substance: VITAMIN D NOS
  7. VITAMIN B SUPPLEMENT [Concomitant]

REACTIONS (22)
  - Paraesthesia [None]
  - Disturbance in attention [None]
  - Muscle spasms [None]
  - Neuralgia [None]
  - Head discomfort [None]
  - Hypoaesthesia [None]
  - Dizziness [None]
  - Anger [None]
  - Mood altered [None]
  - Dyspnoea [None]
  - Musculoskeletal chest pain [None]
  - Weight increased [None]
  - Sleep disorder [None]
  - Anxiety [None]
  - Depression [None]
  - Muscular weakness [None]
  - Arthralgia [None]
  - Tinnitus [None]
  - Fatigue [None]
  - Alopecia [None]
  - Constipation [None]
  - Palpitations [None]

NARRATIVE: CASE EVENT DATE: 20200610
